FAERS Safety Report 10342214 (Version 1)
Quarter: 2014Q3

REPORT INFORMATION
  Report Type: Not Available
  Country: US (occurrence: US)
  Receive Date: 20140725
  Receipt Date: 20140725
  Transmission Date: 20150326
  Serious: No
  Sender: FDA-Public Use
  Company Number: US-LUPIN PHARMACEUTICALS INC.-E2B_00002057

PATIENT
  Age: 52 Year
  Sex: Female
  Weight: 66.28 kg

DRUGS (1)
  1. DAYSEE [Suspect]
     Active Substance: ETHINYL ESTRADIOL\LEVONORGESTREL
     Indication: PRODUCT USED FOR UNKNOWN INDICATION
     Dates: end: 20140515

REACTIONS (1)
  - Drug withdrawal headache [Not Recovered/Not Resolved]

NARRATIVE: CASE EVENT DATE: 20140516
